FAERS Safety Report 9184535 (Version 1)
Quarter: 2012Q4

REPORT INFORMATION
  Report Type: 
  Country: HR (occurrence: HR)
  Receive Date: 20121101
  Receipt Date: 20121101
  Transmission Date: 20130627
  Serious: Yes (Life-Threatening)
  Sender: FDA-Public Use
  Company Number: HR-PFIZER INC-2012270559

PATIENT
  Age: 52 Year
  Sex: Female
  Weight: 72 kg

DRUGS (6)
  1. SORTIS [Suspect]
     Dosage: 20 mg, once daily
     Dates: start: 2009
  2. SANDIMMUN NEORAL [Interacting]
     Dosage: twice daily
     Route: 048
     Dates: start: 2002
  3. AMLOPIN [Concomitant]
     Dosage: 5 mg, once daily
     Route: 048
  4. PANTOPRAZOLE [Concomitant]
     Dosage: 20 mg, once daily
     Route: 048
  5. IMURAN [Concomitant]
     Dosage: 50 mg, once daily
     Route: 048
  6. DECORTIN [Concomitant]
     Dosage: 5 mg, once daily
     Route: 048

REACTIONS (2)
  - Drug interaction [Unknown]
  - Rhabdomyolysis [Unknown]
